FAERS Safety Report 18249010 (Version 4)
Quarter: 2021Q4

REPORT INFORMATION
  Report Type: Other
  Country: CA (occurrence: CA)
  Receive Date: 20200909
  Receipt Date: 20211107
  Transmission Date: 20220303
  Serious: Yes (Other)
  Sender: FDA-Public Use
  Company Number: CA-CELLTRION INC.-2020CA025786

PATIENT

DRUGS (18)
  1. RITUXIMAB [Suspect]
     Active Substance: RITUXIMAB
     Indication: Vasculitis
     Dosage: 500 MG
     Route: 042
  2. RITUXIMAB [Suspect]
     Active Substance: RITUXIMAB
     Indication: Congenital syphilitic osteochondritis
     Dosage: 1000 MG
     Route: 042
  3. MYCOPHENOLATE MOFETIL [Suspect]
     Active Substance: MYCOPHENOLATE MOFETIL
     Indication: Product used for unknown indication
     Route: 065
  4. ACETAMINOPHEN [Concomitant]
     Active Substance: ACETAMINOPHEN
     Indication: Premedication
     Dosage: 650 MG
     Route: 048
  5. ALENDRONATE SODIUM [Concomitant]
     Active Substance: ALENDRONATE SODIUM
  6. ATOVAQUONE [Concomitant]
     Active Substance: ATOVAQUONE
     Route: 048
  7. BISOPROLOL [Concomitant]
     Active Substance: BISOPROLOL
     Indication: Blood pressure measurement
     Dosage: UNK
  8. CALCIUM [Concomitant]
     Active Substance: CALCIUM
  9. DIPHENHYDRAMINE HYDROCHLORIDE [Concomitant]
     Active Substance: DIPHENHYDRAMINE HYDROCHLORIDE
     Indication: Premedication
     Dosage: 50 MG
     Route: 048
  10. ERGOCALCIFEROL [Concomitant]
     Active Substance: ERGOCALCIFEROL
  11. FERROUS SULFATE [Concomitant]
     Active Substance: FERROUS SULFATE
  12. FERROUS SULFATE [Concomitant]
     Active Substance: FERROUS SULFATE
  13. FUROSEMIDE [Concomitant]
     Active Substance: FUROSEMIDE
     Route: 065
  14. METHYLPREDNISOLONE [Concomitant]
     Active Substance: METHYLPREDNISOLONE
     Indication: Premedication
     Dosage: 100 MG
     Route: 042
  15. METOPROLOL [Concomitant]
     Active Substance: METOPROLOL
  16. MINOXIDIL [Concomitant]
     Active Substance: MINOXIDIL
     Indication: Alopecia
  17. PREDNISONE [Concomitant]
     Active Substance: PREDNISONE
  18. RABEPRAZOLE [Concomitant]
     Active Substance: RABEPRAZOLE

REACTIONS (12)
  - Blood pressure fluctuation [Recovered/Resolved]
  - Dysphonia [Recovered/Resolved]
  - Osteoporosis [Recovered/Resolved]
  - Gastrointestinal disorder [Recovered/Resolved]
  - Blood pressure increased [Recovered/Resolved]
  - Infusion related reaction [Recovered/Resolved]
  - Nasal congestion [Recovered/Resolved]
  - Pruritus [Recovered/Resolved]
  - Rhinorrhoea [Recovered/Resolved]
  - Throat irritation [Recovered/Resolved]
  - Off label use [Recovered/Resolved]
  - Off label use [Unknown]
